FAERS Safety Report 11072814 (Version 4)
Quarter: 2017Q2

REPORT INFORMATION
  Report Type: Report from Study
  Country: DE (occurrence: DE)
  Receive Date: 20150428
  Receipt Date: 20170614
  Transmission Date: 20170829
  Serious: Yes (Other)
  Sender: FDA-Public Use
  Company Number: DE-SA-2015SA028016

PATIENT
  Age: 44 Year
  Sex: Female

DRUGS (5)
  1. AUBAGIO [Suspect]
     Active Substance: TERIFLUNOMIDE
     Indication: MULTIPLE SCLEROSIS
     Route: 048
     Dates: start: 20150218, end: 20170531
  2. LYRICA [Concomitant]
     Active Substance: PREGABALIN
     Indication: NEUROPATHY PERIPHERAL
     Route: 048
     Dates: start: 2015
  3. VITAMIN B12 [Concomitant]
     Active Substance: CYANOCOBALAMIN
  4. AUBAGIO [Suspect]
     Active Substance: TERIFLUNOMIDE
     Indication: MULTIPLE SCLEROSIS
     Route: 048
     Dates: start: 20150218, end: 20170531
  5. AUBAGIO [Suspect]
     Active Substance: TERIFLUNOMIDE
     Indication: MULTIPLE SCLEROSIS
     Route: 048
     Dates: start: 20150218, end: 20170531

REACTIONS (27)
  - Pruritus [Not Recovered/Not Resolved]
  - Hair colour changes [Not Recovered/Not Resolved]
  - Gastritis [Unknown]
  - Onychoclasis [Not Recovered/Not Resolved]
  - Ocular discomfort [Unknown]
  - Decreased appetite [Recovered/Resolved]
  - Dizziness [Not Recovered/Not Resolved]
  - Weight increased [Unknown]
  - Head discomfort [Recovered/Resolved]
  - Hypoaesthesia [Not Recovered/Not Resolved]
  - Major depression [Recovered/Resolved]
  - Gastrointestinal sounds abnormal [Recovered/Resolved]
  - Acne [Recovered/Resolved]
  - Skin exfoliation [Recovering/Resolving]
  - Fatigue [Not Recovered/Not Resolved]
  - Listless [Not Recovered/Not Resolved]
  - Visual impairment [Unknown]
  - Condition aggravated [Not Recovered/Not Resolved]
  - Dry skin [Not Recovered/Not Resolved]
  - Gastrointestinal infection [Recovered/Resolved]
  - Photopsia [Not Recovered/Not Resolved]
  - Diarrhoea [Recovered/Resolved]
  - Headache [Not Recovered/Not Resolved]
  - Hyperaesthesia [Unknown]
  - Laboratory test abnormal [Unknown]
  - Muscle spasticity [Not Recovered/Not Resolved]
  - Pain [Not Recovered/Not Resolved]

NARRATIVE: CASE EVENT DATE: 2015
